FAERS Safety Report 25508009 (Version 2)
Quarter: 2025Q3

REPORT INFORMATION
  Report Type: Spontaneous
  Country: CN (occurrence: CN)
  Receive Date: 20250703
  Receipt Date: 20250714
  Transmission Date: 20251020
  Serious: Yes (Other)
  Sender: ALKEM
  Company Number: KR-ALKEM LABORATORIES LIMITED-KR-ALKEM-2025-06847

PATIENT
  Age: 67 Year
  Sex: Male

DRUGS (3)
  1. LINEZOLID [Suspect]
     Active Substance: LINEZOLID
     Indication: Pulmonary tuberculosis
     Dosage: 0.6 GRAM, QD
     Route: 048
  2. MOXIFLOXACIN HYDROCHLORIDE [Concomitant]
     Active Substance: MOXIFLOXACIN HYDROCHLORIDE
     Indication: Pulmonary tuberculosis
     Dosage: 0.4 GRAM, QD
     Route: 048
  3. PROTIONAMIDE [Concomitant]
     Active Substance: PROTIONAMIDE
     Indication: Pulmonary tuberculosis
     Dosage: 0.5 GRAM, QD
     Route: 048

REACTIONS (1)
  - Toxic optic neuropathy [Unknown]
